FAERS Safety Report 5154880-5 (Version None)
Quarter: 2006Q4

REPORT INFORMATION
  Report Type: 
  Country: None (occurrence: None)
  Receive Date: 20061121
  Receipt Date: 20061108
  Transmission Date: 20070319
  Serious: Yes (Death, Other)
  Sender: FDA-Public Use
  Company Number: JP-BRISTOL-MYERS SQUIBB COMPANY-13573779

PATIENT
  Age: 7 Decade
  Sex: Male

DRUGS (2)
  1. BRIPLATIN [Suspect]
     Indication: NON-SMALL CELL LUNG CANCER
     Route: 041
     Dates: start: 20061001, end: 20061001
  2. NAVELBINE [Concomitant]
     Route: 041
     Dates: start: 20061001, end: 20061001

REACTIONS (4)
  - DISSEMINATED INTRAVASCULAR COAGULATION [None]
  - PLATELET COUNT DECREASED [None]
  - RENAL IMPAIRMENT [None]
  - WHITE BLOOD CELL COUNT DECREASED [None]
